FAERS Safety Report 7451225-2 (Version None)
Quarter: 2011Q2

REPORT INFORMATION
  Report Type: 
  Country: None (occurrence: None)
  Receive Date: 20110502
  Receipt Date: 20110421
  Transmission Date: 20111010
  Serious: Yes (Other)
  Sender: FDA-Public Use
  Company Number: PHHY2011US29970

PATIENT
  Sex: Female

DRUGS (7)
  1. VIVELLE-DOT [Suspect]
     Dosage: 0.05 MG
     Route: 062
  2. PROGESTERONE [Concomitant]
     Dosage: 50 MG DAILY
     Route: 048
  3. CALCIUM [Concomitant]
  4. ZOCOR [Concomitant]
  5. VIVELLE-DOT [Suspect]
     Dosage: 0.0375 MG, TWICE PER WEEK
     Route: 062
  6. COMBIPATCH [Suspect]
     Route: 062
  7. PROGESTERONE [Concomitant]
     Route: 048

REACTIONS (3)
  - VAGINAL HAEMORRHAGE [None]
  - DRUG INEFFECTIVE [None]
  - UTERINE DISORDER [None]
